FAERS Safety Report 18414166 (Version 2)
Quarter: 2020Q4

REPORT INFORMATION
  Report Type: Spontaneous
  Country: JP (occurrence: JP)
  Receive Date: 20201022
  Receipt Date: 20201110
  Transmission Date: 20210114
  Serious: Yes (Hospitalization, Other)
  Sender: FDA-Public Use
  Company Number: JP-009507513-2010JPN001161J

PATIENT
  Age: 77 Year
  Sex: Female

DRUGS (1)
  1. KEYTRUDA [Suspect]
     Active Substance: PEMBROLIZUMAB
     Indication: BLADDER CANCER
     Dosage: UNK
     Route: 041

REACTIONS (4)
  - Immune-mediated enterocolitis [Unknown]
  - Intestinal ischaemia [Unknown]
  - Diabetic ketoacidosis [Recovering/Resolving]
  - Fulminant type 1 diabetes mellitus [Unknown]
